FAERS Safety Report 14561999 (Version 1)
Quarter: 2018Q1

REPORT INFORMATION
  Report Type: Spontaneous
  Country: US (occurrence: US)
  Receive Date: 20180221
  Receipt Date: 20180221
  Transmission Date: 20180509
  Serious: Yes (Other)
  Sender: FDA-Public Use
  Company Number: None

PATIENT
  Age: 34 Year
  Sex: Female
  Weight: 57.6 kg

DRUGS (10)
  1. B VITAMINS COMPLEX [Concomitant]
  2. COQ10 [Concomitant]
     Active Substance: UBIDECARENONE
  3. VITAMIN D [Concomitant]
     Active Substance: CHOLECALCIFEROL
  4. FIBER [Concomitant]
     Active Substance: PSYLLIUM HUSK
  5. TURMERIC [Concomitant]
     Active Substance: HERBALS\TURMERIC
  6. VITAMIN C [Concomitant]
     Active Substance: ASCORBIC ACID
  7. ADDERALL [Concomitant]
     Active Substance: AMPHETAMINE ASPARTATE\AMPHETAMINE SULFATE\DEXTROAMPHETAMINE SACCHARATE\DEXTROAMPHETAMINE SULFATE
  8. INH [Suspect]
     Active Substance: ISONIAZID
     Indication: LATENT TUBERCULOSIS
     Dosage: ?          QUANTITY:30 TABLET(S);?
     Route: 048
     Dates: start: 20180219
  9. COPAXONE [Concomitant]
     Active Substance: GLATIRAMER ACETATE
  10. ALPHA LIPOID ACID [Concomitant]

REACTIONS (6)
  - Head discomfort [None]
  - Headache [None]
  - Ocular discomfort [None]
  - Vision blurred [None]
  - Ocular hyperaemia [None]
  - Pain [None]

NARRATIVE: CASE EVENT DATE: 20180220
